FAERS Safety Report 9518275 (Version 2)
Quarter: 2013Q3

REPORT INFORMATION
  Report Type: Spontaneous
  Country: NL (occurrence: NL)
  Receive Date: 20130912
  Receipt Date: 20130916
  Transmission Date: 20140515
  Serious: Yes (Hospitalization)
  Sender: FDA-Public Use
  Company Number: NL-AMGEN-NLDSP2013063369

PATIENT
  Age: 73 Year
  Sex: Male

DRUGS (2)
  1. NEULASTA [Suspect]
     Indication: PRODUCT USED FOR UNKNOWN INDICATION
     Dosage: 6 MG, 1X
     Route: 058
     Dates: start: 20130816
  2. CHEMOTHERAPEUTICS [Concomitant]
     Indication: NON-HODGKIN^S LYMPHOMA
     Dosage: UNK

REACTIONS (5)
  - Thrombosis [Unknown]
  - Pyrexia [Unknown]
  - Hypotension [Unknown]
  - Malaise [Unknown]
  - Blood pressure increased [Unknown]
